FAERS Safety Report 11498231 (Version 3)
Quarter: 2016Q1

REPORT INFORMATION
  Report Type: Spontaneous
  Country: US (occurrence: US)
  Receive Date: 20150911
  Receipt Date: 20160304
  Transmission Date: 20160525
  Serious: No
  Sender: FDA-Public Use
  Company Number: US-PFIZER INC-2015292110

PATIENT
  Age: 48 Year
  Sex: Female

DRUGS (5)
  1. LYRICA [Suspect]
     Active Substance: PREGABALIN
     Indication: SEIZURE
     Dosage: 100 MG, UNK
     Route: 048
     Dates: start: 201503
  2. LYRICA [Suspect]
     Active Substance: PREGABALIN
     Dosage: HALF OF THE PRESCRIBED AMOUNT OF MEDICATION
  3. LYRICA [Suspect]
     Active Substance: PREGABALIN
     Dosage: 6 DF, DAILY
  4. LYRICA [Suspect]
     Active Substance: PREGABALIN
     Dosage: 100 MG, 2X/DAY
  5. LYRICA [Suspect]
     Active Substance: PREGABALIN
     Dosage: 2 DF, DAILY

REACTIONS (9)
  - Diarrhoea [Unknown]
  - Vomiting [Unknown]
  - Sciatica [Unknown]
  - Intentional product use issue [Unknown]
  - Hypoaesthesia [Unknown]
  - Headache [Unknown]
  - Insomnia [Unknown]
  - Drug withdrawal syndrome [Unknown]
  - Nausea [Unknown]
